FAERS Safety Report 4594698-5 (Version None)
Quarter: 2005Q1

REPORT INFORMATION
  Report Type: 
  Country: None (occurrence: None)
  Receive Date: 20050301
  Receipt Date: 20050110
  Transmission Date: 20050727
  Serious: No
  Sender: FDA-Public Use
  Company Number: US-BRISTOL-MYERS SQUIBB COMPANY-12820379

PATIENT
  Sex: Female

DRUGS (6)
  1. ERBITUX [Suspect]
     Indication: COLON CANCER METASTATIC
     Route: 042
     Dates: start: 20050110
  2. ANZEMET [Concomitant]
     Indication: PREMEDICATION
     Dates: start: 20050110
  3. ATROPINE [Concomitant]
     Indication: PREMEDICATION
     Dates: start: 20050110
  4. FLUOROURACIL [Concomitant]
  5. IRINOTECAN HCL [Concomitant]
  6. LEUCOVORIN [Concomitant]

REACTIONS (1)
  - INJECTION SITE REACTION [None]
